FAERS Safety Report 6930743-7 (Version None)
Quarter: 2010Q3

REPORT INFORMATION
  Report Type: 
  Country: None (occurrence: None)
  Receive Date: 20100818
  Receipt Date: 20100809
  Transmission Date: 20110219
  Serious: Yes (Other)
  Sender: FDA-Public Use
  Company Number: US-ASTRAZENECA-2010SE29797

PATIENT
  Age: 19760 Day
  Sex: Male
  Weight: 119.3 kg

DRUGS (27)
  1. SEROQUEL XR [Suspect]
     Route: 048
     Dates: start: 20100323, end: 20100330
  2. SEROQUEL XR [Interacting]
     Route: 048
     Dates: start: 20100330
  3. SEROQUEL XR [Interacting]
     Route: 048
     Dates: start: 20100624, end: 20100701
  4. AMBIEN SR [Interacting]
     Route: 048
     Dates: start: 20091110, end: 20100428
  5. ATENOLOL [Concomitant]
     Route: 048
     Dates: start: 20091110
  6. LISINOPRIL [Concomitant]
     Route: 048
     Dates: start: 20091110
  7. CITALOPRAM HYDROBROMIDE [Concomitant]
     Route: 048
     Dates: start: 20091110
  8. TRAZODONE HCL [Concomitant]
     Route: 048
     Dates: start: 20091110
  9. LAMICTAL [Concomitant]
     Route: 048
     Dates: start: 20091110
  10. LAMICTAL [Concomitant]
     Route: 048
     Dates: start: 20090105
  11. RANITIDINE [Concomitant]
     Dates: start: 20091110
  12. RANITIDINE [Concomitant]
     Dates: start: 20090105
  13. VYTORIN [Concomitant]
     Dosage: 10/30 MG DAILY
     Route: 048
     Dates: start: 20091110
  14. VYTORIN [Concomitant]
     Dosage: 10/30 MG DAILY
     Route: 048
     Dates: start: 20090105
  15. ASPIRIN [Concomitant]
     Route: 048
     Dates: start: 20091110
  16. MULTIVITAMIN DAILY [Concomitant]
     Dosage: DAILY
  17. GLUCOSAMINE DAILY [Concomitant]
     Dosage: DAILY
  18. HYDROCODONE WITH APAP [Concomitant]
     Dosage: 5/500 MG EIGHT TABLETS DAILY
  19. HYDROCODONE WITH APAP [Concomitant]
     Dosage: 5/500 MG 4 TABLETS DAILY
  20. HYDROCODONE WITH APAP [Concomitant]
     Dosage: 5/500 MG 6-7 TABLETS DAILY
  21. PRAZOSIN [Concomitant]
     Route: 048
  22. PRAZOSIN [Concomitant]
     Route: 048
  23. NITROGLYCERIN [Concomitant]
     Dosage: UNKNOWN DOSE AS REQUIRED
     Dates: start: 20100105
  24. RITALIN-SR [Concomitant]
     Route: 048
     Dates: start: 20091110
  25. LUNESTA [Concomitant]
     Dates: start: 20100428
  26. TAMSULOSIN HCL [Concomitant]
     Dates: start: 20100729
  27. HEXENE [Concomitant]
     Dates: start: 20100729

REACTIONS (10)
  - AGGRESSION [None]
  - AGITATION [None]
  - ALTERED STATE OF CONSCIOUSNESS [None]
  - HEADACHE [None]
  - HYPERSOMNIA [None]
  - HYPOAESTHESIA [None]
  - LOSS OF CONSCIOUSNESS [None]
  - POISONING [None]
  - POTENTIATING DRUG INTERACTION [None]
  - ROAD TRAFFIC ACCIDENT [None]
